FAERS Safety Report 6880000-2 (Version None)
Quarter: 2010Q3

REPORT INFORMATION
  Report Type: 
  Country: None (occurrence: None)
  Receive Date: 20100728
  Receipt Date: 20100720
  Transmission Date: 20110219
  Serious: Yes (Other)
  Sender: FDA-Public Use
  Company Number: US-SANOFI-AVENTIS-2010SA042937

PATIENT
  Age: 58 Year
  Sex: Male
  Weight: 88.9 kg

DRUGS (2)
  1. ALLEGRA [Suspect]
     Indication: SEASONAL ALLERGY
     Route: 048
     Dates: end: 20100601
  2. ALL OTHER THERAPEUTIC PRODUCTS [Concomitant]

REACTIONS (1)
  - WHITE BLOOD CELL COUNT DECREASED [None]
